FAERS Safety Report 9746625 (Version 2)
Quarter: 2013Q4

REPORT INFORMATION
  Report Type: Report from Study
  Country: FR (occurrence: FR)
  Receive Date: 20131211
  Receipt Date: 20131211
  Transmission Date: 20140711
  Serious: Yes (Life-Threatening)
  Sender: FDA-Public Use
  Company Number: FR-ASTRAZENECA-2013SE14739

PATIENT
  Age: 542 Month
  Sex: Male
  Weight: 86 kg

DRUGS (2)
  1. XEROQUEL [Suspect]
     Indication: SCHIZOPHRENIA
     Route: 048
     Dates: start: 20130218, end: 20131003
  2. LEPONEX [Concomitant]
     Route: 048
     Dates: start: 20131007

REACTIONS (4)
  - Disease recurrence [Recovering/Resolving]
  - Drug ineffective [Unknown]
  - Intentional drug misuse [Unknown]
  - Overdose [Unknown]
